FAERS Safety Report 8362740-1 (Version None)
Quarter: 2012Q2

REPORT INFORMATION
  Report Type: 
  Country: None (occurrence: None)
  Receive Date: 20120516
  Receipt Date: 20120507
  Transmission Date: 20120825
  Serious: Yes (Hospitalization, Other)
  Sender: FDA-Public Use
  Company Number: BR-BAYER-2011-113544

PATIENT
  Age: 68 Year
  Sex: Male
  Weight: 70 kg

DRUGS (9)
  1. NEXAVAR [Suspect]
     Dosage: DAILY DOSE 600 MG (1 TABLET IN THE MORNING AND 2 TABLETS AT NIGHT)
     Dates: start: 20111205, end: 20120217
  2. NEXAVAR [Suspect]
     Dosage: 400 MG, QD
     Route: 048
     Dates: start: 20120330
  3. IMOSEC [Concomitant]
     Dosage: UNK
     Dates: start: 20111029, end: 20111029
  4. NEXAVAR [Suspect]
     Indication: HEPATIC NEOPLASM MALIGNANT
     Dosage: 200 MG, BID
     Route: 048
     Dates: start: 20111029, end: 20111118
  5. NEXAVAR [Suspect]
     Dosage: 400 MG, BID
     Route: 048
     Dates: start: 20111119, end: 20111204
  6. OMEPRAZOLE [Concomitant]
     Indication: PROPHYLAXIS
     Dosage: 1 DF, QD
     Route: 048
     Dates: start: 20111029
  7. NPH INSULIN [Concomitant]
     Indication: DIABETES MELLITUS
     Dosage: 24IU AM AND 12IU PM
     Route: 058
     Dates: start: 20080101
  8. PROPRANOLOL [Concomitant]
     Indication: VARICES OESOPHAGEAL
     Dosage: 2 DF, BID
     Route: 048
     Dates: start: 20080101
  9. CARBAMAZEPINE [Suspect]
     Indication: BURNING SENSATION
     Dosage: 1 DF, BID
     Route: 048
     Dates: start: 20111101, end: 20111201

REACTIONS (15)
  - HYPERSOMNIA [None]
  - BODY TEMPERATURE INCREASED [None]
  - PAIN IN EXTREMITY [None]
  - CONSTIPATION [None]
  - CONFUSIONAL STATE [None]
  - CHROMATURIA [None]
  - HYPERKERATOSIS [None]
  - BURNING SENSATION [None]
  - ASCITES [None]
  - JAUNDICE [None]
  - OCULAR ICTERUS [None]
  - URINARY TRACT INFECTION [None]
  - TREMOR [None]
  - HAIR COLOUR CHANGES [None]
  - ALOPECIA [None]
